FAERS Safety Report 15825321 (Version 3)
Quarter: 2019Q1

REPORT INFORMATION
  Report Type: Report from Study
  Country: AU (occurrence: AU)
  Receive Date: 20190115
  Receipt Date: 20190222
  Transmission Date: 20190417
  Serious: Yes (Hospitalization)
  Sender: FDA-Public Use
  Company Number: AU-ROCHE-2243020

PATIENT
  Age: 77 Year
  Sex: Male
  Weight: 100.2 kg

DRUGS (16)
  1. DERALIN [Concomitant]
     Active Substance: PROPRANOLOL HYDROCHLORIDE
     Indication: TREMOR
  2. PARIET [Concomitant]
     Active Substance: RABEPRAZOLE SODIUM
     Indication: GASTROOESOPHAGEAL REFLUX DISEASE
     Route: 065
     Dates: start: 20161115
  3. SPAN K [Concomitant]
     Indication: BLOOD POTASSIUM DECREASED
     Route: 065
     Dates: start: 20160617
  4. CALTRATE [Concomitant]
     Active Substance: CALCIUM CARBONATE
     Indication: BLOOD CALCIUM DECREASED
     Route: 065
     Dates: start: 20160617
  5. CARTIA (AUSTRALIA) [Concomitant]
     Indication: RETINAL ARTERY THROMBOSIS
     Route: 065
     Dates: start: 20160729
  6. ANTENEX [Concomitant]
     Active Substance: DIAZEPAM
     Indication: ANXIETY
  7. NAB-PACLITAXEL [Suspect]
     Active Substance: PACLITAXEL
     Indication: NON-SMALL CELL LUNG CANCER STAGE IV
     Dosage: ON DAY 1, 8, AND 15 OF EACH 21-DAY CYCLE FOR 4 OR 6 CYCLES.?DATE OF MOST RECENT DOSE: 16/SEP/2018 (1
     Route: 042
     Dates: start: 20160513, end: 20160916
  8. CARBOPLATIN. [Suspect]
     Active Substance: CARBOPLATIN
     Indication: NON-SMALL CELL LUNG CANCER STAGE IV
     Dosage: 6 MILLIGRAMS PER MILLILITER PER MINUTE (MG/ML/MIN) ON DAY 1 OF EACH 21-DAY CYCLE FOR 4 OR 6 CYCLES
     Route: 042
     Dates: start: 20160513
  9. CEPHALEXIN. [Concomitant]
     Active Substance: CEPHALEXIN
     Indication: LOWER RESPIRATORY TRACT INFECTION
  10. PHENERGAN [Concomitant]
     Active Substance: PROMETHAZINE HYDROCHLORIDE
     Indication: PSORIASIS
     Route: 065
     Dates: start: 20170610
  11. TEMAZEPAM. [Concomitant]
     Active Substance: TEMAZEPAM
     Indication: INSOMNIA
  12. ATEZOLIZUMAB. [Suspect]
     Active Substance: ATEZOLIZUMAB
     Indication: NON-SMALL CELL LUNG CANCER STAGE IV
     Dosage: ON DAY 1 OF EACH 21-DAY CYCLE (AS PER PROTOCOL)?DATE OF MOST RECENT DOSE OF ATEZOLIZUMAB PRIOR TO SA
     Route: 042
     Dates: start: 20160513
  13. JANUMET [Concomitant]
     Active Substance: METFORMIN HYDROCHLORIDE\SITAGLIPTIN PHOSPHATE
     Indication: DIABETES MELLITUS
     Route: 065
     Dates: start: 20180421
  14. FLOMAX (AUSTRALIA) [Concomitant]
     Indication: PROSTATOMEGALY
  15. CLARATYNE [Concomitant]
     Active Substance: LORATADINE
     Indication: SEASONAL ALLERGY
  16. PANADOL (AUSTRALIA) [Concomitant]
     Indication: PAIN

REACTIONS (1)
  - Epistaxis [Recovered/Resolved]

NARRATIVE: CASE EVENT DATE: 20190107
